FAERS Safety Report 4806169-9 (Version None)
Quarter: 2005Q4

REPORT INFORMATION
  Report Type: 
  Country: None (occurrence: None)
  Receive Date: 20051021
  Receipt Date: 20050419
  Transmission Date: 20060501
  Serious: Yes (Hospitalization, Disabling)
  Sender: FDA-Public Use
  Company Number: US-MERCK-0504USA03736

PATIENT
  Age: 50 Year
  Sex: Female
  Weight: 114 kg

DRUGS (8)
  1. VIOXX [Suspect]
     Indication: ARTHRITIS
     Route: 048
     Dates: start: 20020101, end: 20030402
  2. VIOXX [Suspect]
     Route: 048
     Dates: start: 20020601, end: 20030402
  3. VIOXX [Suspect]
     Indication: TENOSYNOVITIS
     Route: 048
     Dates: start: 20020101, end: 20030402
  4. VIOXX [Suspect]
     Route: 048
     Dates: start: 20020601, end: 20030402
  5. WELLBUTRIN [Concomitant]
     Route: 065
  6. LIPITOR [Concomitant]
     Route: 065
  7. MOTRIN [Concomitant]
     Route: 065
  8. [THERAPY UNSPECIFIED] [Concomitant]
     Route: 065

REACTIONS (11)
  - BLOOD CHOLESTEROL INCREASED [None]
  - BLOOD TRIGLYCERIDES INCREASED [None]
  - CAROTID ARTERY STENOSIS [None]
  - CEREBROVASCULAR ACCIDENT [None]
  - DEPRESSION [None]
  - HYPERTENSION [None]
  - INTERVERTEBRAL DISC DEGENERATION [None]
  - NARCOLEPSY [None]
  - OEDEMA PERIPHERAL [None]
  - SLEEP APNOEA SYNDROME [None]
  - THYROID DISORDER [None]
